FAERS Safety Report 22133615 (Version 2)
Quarter: 2023Q2

REPORT INFORMATION
  Report Type: Report from Study
  Country: CA (occurrence: CA)
  Receive Date: 20230324
  Receipt Date: 20230407
  Transmission Date: 20230722
  Serious: Yes (Hospitalization, Other)
  Sender: FDA-Public Use
  Company Number: CA-002147023-NVSC2023CA023299

PATIENT
  Age: 56 Year
  Sex: Male

DRUGS (1)
  1. VOTRIENT [Suspect]
     Active Substance: PAZOPANIB HYDROCHLORIDE
     Indication: Metastatic renal cell carcinoma
     Dosage: 800 MG, QD
     Route: 048
     Dates: start: 20230118

REACTIONS (9)
  - Gastrointestinal haemorrhage [Unknown]
  - Cholecystitis [Unknown]
  - Jaundice [Unknown]
  - Influenza like illness [Unknown]
  - Pain [Unknown]
  - Joint swelling [Unknown]
  - Gait disturbance [Unknown]
  - Arthralgia [Unknown]
  - Chills [Unknown]
